FAERS Safety Report 9148259 (Version 1)
Quarter: 2013Q1

REPORT INFORMATION
  Report Type: Spontaneous
  Country: US (occurrence: None)
  Receive Date: 20130228
  Receipt Date: 20130228
  Transmission Date: 20140127
  Serious: Yes (Life-Threatening)
  Sender: FDA-Public Use
  Company Number: None

PATIENT
  Age: 67 Year
  Sex: 0
  Weight: 95.26 kg

DRUGS (1)
  1. ARIMIDEX [Suspect]
     Dates: start: 20130123, end: 20130125

REACTIONS (15)
  - Wheezing [None]
  - Swelling face [None]
  - Lip swelling [None]
  - Swollen tongue [None]
  - Pharyngeal oedema [None]
  - Cyst [None]
  - Abscess [None]
  - Arthropathy [None]
  - Bone pain [None]
  - Dysstasia [None]
  - Gait disturbance [None]
  - Anxiety [None]
  - Arthralgia [None]
  - Blood pressure increased [None]
  - Faecaloma [None]
